FAERS Safety Report 16754301 (Version 2)
Quarter: 2019Q3

REPORT INFORMATION
  Report Type: Spontaneous
  Country: US (occurrence: US)
  Receive Date: 20190829
  Receipt Date: 20190904
  Transmission Date: 20191005
  Serious: Yes (Other)
  Sender: FDA-Public Use
  Company Number: US-PURDUE PHARMA-USA-2019-0148090

PATIENT
  Sex: Male

DRUGS (4)
  1. OXYCONTIN [Suspect]
     Active Substance: OXYCODONE HYDROCHLORIDE
     Dosage: 120 MG, UNK
     Route: 048
     Dates: end: 2004
  2. OXYCONTIN [Suspect]
     Active Substance: OXYCODONE HYDROCHLORIDE
     Dosage: 20 MG, UP TO 4 TABLETS DAILY
     Route: 048
     Dates: start: 2004
  3. TOPAMAX [Concomitant]
     Active Substance: TOPIRAMATE
     Indication: PRODUCT USED FOR UNKNOWN INDICATION
     Route: 048
  4. OXYCONTIN [Suspect]
     Active Substance: OXYCODONE HYDROCHLORIDE
     Indication: PAIN
     Dosage: 80 MG, DAILY
     Route: 048
     Dates: start: 2000

REACTIONS (6)
  - Drug dependence [Unknown]
  - Knee arthroplasty [Unknown]
  - Euphoric mood [Unknown]
  - Ankle arthroplasty [Unknown]
  - Off label use [Not Recovered/Not Resolved]
  - Constipation [Unknown]
